FAERS Safety Report 5398646-X (Version None)
Quarter: 2007Q3

REPORT INFORMATION
  Report Type: 
  Country: None (occurrence: None)
  Receive Date: 20070726
  Receipt Date: 20060605
  Transmission Date: 20080115
  Serious: No
  Sender: FDA-Public Use
  Company Number: US-AMGEN-KDL039068

PATIENT
  Sex: Female
  Weight: 98 kg

DRUGS (3)
  1. PROCRIT [Suspect]
     Indication: RENAL FAILURE CHRONIC
     Dates: start: 20021001, end: 20060401
  2. GERITOL [Concomitant]
  3. IRON [Concomitant]
     Route: 048

REACTIONS (3)
  - BLOOD DISORDER [None]
  - DRUG INEFFECTIVE [None]
  - HYPERSENSITIVITY [None]
